FAERS Safety Report 15916794 (Version 2)
Quarter: 2019Q3

REPORT INFORMATION
  Report Type: Spontaneous
  Country: AT (occurrence: AT)
  Receive Date: 20190205
  Receipt Date: 20190919
  Transmission Date: 20191004
  Serious: Yes (Other)
  Sender: FDA-Public Use
  Company Number: AT-ROCHE-2256247

PATIENT
  Sex: Female

DRUGS (2)
  1. XELODA [Suspect]
     Active Substance: CAPECITABINE
     Indication: PANCREATIC CARCINOMA
     Dosage: CYCLIC?MOST RECENT DOSE: 22/NOV/2018
     Route: 065
  2. MITOMYCIN. [Suspect]
     Active Substance: MITOMYCIN
     Indication: PANCREATIC CARCINOMA
     Dosage: CYCLIC?MOST RECENT DOSE: 22/NOV/2018
     Route: 065

REACTIONS (2)
  - Concomitant disease progression [Unknown]
  - Metastases to liver [Unknown]

NARRATIVE: CASE EVENT DATE: 20190103
